FAERS Safety Report 17550665 (Version 1)
Quarter: 2020Q1

REPORT INFORMATION
  Report Type: Spontaneous
  Country: US (occurrence: US)
  Receive Date: 20200317
  Receipt Date: 20200317
  Transmission Date: 20200409
  Serious: Yes (Other)
  Sender: FDA-Public Use
  Company Number: US-ELI_LILLY_AND_COMPANY-US202003002569

PATIENT
  Age: 72 Year
  Sex: Female

DRUGS (2)
  1. HUMALOG [Suspect]
     Active Substance: INSULIN LISPRO
     Dosage: 20 U, OTHER (THREE TIMES PER DAY AND ONE TIME AT NIGHT)
     Route: 058
  2. HUMALOG [Suspect]
     Active Substance: INSULIN LISPRO
     Indication: TYPE 2 DIABETES MELLITUS
     Dosage: 20 U, OTHER (THREE TIMES PER DAY AND ONE TIME AT NIGHT)
     Route: 058

REACTIONS (4)
  - Oropharyngeal discomfort [Unknown]
  - Odynophagia [Unknown]
  - Cough [Unknown]
  - Breast cancer [Unknown]

NARRATIVE: CASE EVENT DATE: 2019
